FAERS Safety Report 7132774-3 (Version None)
Quarter: 2010Q4

REPORT INFORMATION
  Report Type: 
  Country: None (occurrence: None)
  Receive Date: 20101202
  Receipt Date: 20101122
  Transmission Date: 20110411
  Serious: No
  Sender: FDA-Public Use
  Company Number: US-PFIZER INC-2010154770

PATIENT
  Sex: Female
  Weight: 106 kg

DRUGS (4)
  1. PRISTIQ [Suspect]
     Indication: DEPRESSION
     Dosage: 50 MG, 1X/DAY
     Route: 048
     Dates: end: 20101120
  2. PROZAC [Suspect]
     Indication: DEPRESSION
     Dosage: 40 MG, 1X/DAY
     Route: 048
     Dates: start: 20101120
  3. FEXOFENADINE [Concomitant]
     Indication: SEASONAL ALLERGY
     Dosage: 180 MG, UNK
     Route: 048
  4. YASMIN [Concomitant]
     Indication: CONTRACEPTION
     Dosage: UNK

REACTIONS (3)
  - HEADACHE [None]
  - NAUSEA [None]
  - POOR QUALITY SLEEP [None]
